FAERS Safety Report 6521746-5 (Version None)
Quarter: 2009Q4

REPORT INFORMATION
  Report Type: 
  Country: None (occurrence: None)
  Receive Date: 20091230
  Receipt Date: 20091229
  Transmission Date: 20100525
  Serious: Yes (Death)
  Sender: FDA-Public Use
  Company Number: AU-SANOFI-AVENTIS-2009SA002147

PATIENT
  Age: 68 Year
  Sex: Female

DRUGS (16)
  1. ARAVA [Suspect]
     Route: 048
     Dates: start: 20050517, end: 20090901
  2. PREDNISOLONE [Concomitant]
  3. ROCALTROL [Concomitant]
     Dosage: 0.25 MCI
  4. SINEMET [Concomitant]
  5. ATENOLOL [Concomitant]
  6. CALTRATE [Concomitant]
  7. FOSAMAX [Concomitant]
  8. AVAPRO [Concomitant]
  9. KINSON [Concomitant]
  10. OXYCONTIN [Concomitant]
  11. PANAFCORTELONE [Concomitant]
     Dosage: 5 TIMES DAILY
  12. PARIET [Concomitant]
  13. ACTONEL COMBI C [Concomitant]
  14. OROXINE [Concomitant]
     Dosage: 100 MCI
  15. ENDONE [Concomitant]
  16. PANAMAX [Concomitant]

REACTIONS (1)
  - DEATH [None]
